FAERS Safety Report 6616757-5 (Version None)
Quarter: 2010Q1

REPORT INFORMATION
  Report Type: 
  Country: None (occurrence: None)
  Receive Date: 20100305
  Receipt Date: 20100225
  Transmission Date: 20100710
  Serious: Yes (Death, Hospitalization, Other)
  Sender: FDA-Public Use
  Company Number: SK-GENENTECH-262117

PATIENT
  Sex: Male

DRUGS (14)
  1. XOLAIR [Suspect]
     Indication: ASTHMA
     Dosage: 225 MG, Q2W
     Route: 058
     Dates: start: 20071112, end: 20080429
  2. HYDROCORTISONE [Concomitant]
     Indication: DRUG USE FOR UNKNOWN INDICATION
     Dosage: UNK UNK, UNKNOWN
     Route: 065
  3. RANITAL [Concomitant]
     Indication: DRUG USE FOR UNKNOWN INDICATION
     Dosage: UNK UNK, UNKNOWN
     Route: 065
  4. DIAZEPAM [Concomitant]
     Indication: DRUG USE FOR UNKNOWN INDICATION
     Dosage: UNK UNK, UNKNOWN
     Route: 065
  5. SYNTOPHYLLIN [Concomitant]
     Indication: DRUG USE FOR UNKNOWN INDICATION
     Dosage: UNK UNK, UNKNOWN
     Route: 065
  6. DIGOXIN [Concomitant]
     Indication: DRUG USE FOR UNKNOWN INDICATION
     Dosage: UNK UNK, UNKNOWN
     Route: 065
  7. PROPAFENONE HCL [Concomitant]
     Indication: DRUG USE FOR UNKNOWN INDICATION
     Dosage: UNK UNK, UNKNOWN
     Route: 065
  8. ADRENALINE [Concomitant]
     Indication: DRUG USE FOR UNKNOWN INDICATION
     Dosage: UNK UNK, UNKNOWN
     Route: 065
  9. SODIUM BICARBONATE [Concomitant]
     Indication: DRUG USE FOR UNKNOWN INDICATION
     Dosage: UNK UNK, UNKNOWN
     Route: 065
  10. FUROSEMIDE [Concomitant]
     Indication: DRUG USE FOR UNKNOWN INDICATION
     Dosage: UNK UNK, UNKNOWN
     Route: 067
  11. VOLUVEN [Concomitant]
     Indication: DRUG USE FOR UNKNOWN INDICATION
  12. CLAFORAN [Concomitant]
     Indication: DRUG USE FOR UNKNOWN INDICATION
  13. CARDILAN [Concomitant]
     Indication: DRUG USE FOR UNKNOWN INDICATION
  14. CONCOMITANT DRUG [Concomitant]
     Indication: DRUG USE FOR UNKNOWN INDICATION

REACTIONS (14)
  - ABDOMINAL NEOPLASM [None]
  - ABDOMINAL PAIN UPPER [None]
  - ASTHENIA [None]
  - BLOOD PRESSURE DECREASED [None]
  - CHOLELITHIASIS [None]
  - DYSPNOEA [None]
  - GALLBLADDER EMPYEMA [None]
  - GENERAL PHYSICAL HEALTH DETERIORATION [None]
  - HEPATORENAL FAILURE [None]
  - HYDROCHOLECYSTIS [None]
  - JAUNDICE [None]
  - MULTI-ORGAN FAILURE [None]
  - MUSCULOSKELETAL CHEST PAIN [None]
  - PANCREATIC CARCINOMA [None]
